FAERS Safety Report 13762989 (Version 1)
Quarter: 2017Q3

REPORT INFORMATION
  Report Type: Spontaneous
  Country: US (occurrence: US)
  Receive Date: 20170718
  Receipt Date: 20170718
  Transmission Date: 20171127
  Serious: Yes (Other)
  Sender: FDA-Public Use
  Company Number: None

PATIENT
  Sex: Male
  Weight: 74.61 kg

DRUGS (1)
  1. BUPRENORPHINE-NALOXONE [Suspect]
     Active Substance: BUPRENORPHINE HYDROCHLORIDE\NALOXONE HYDROCHLORIDE
     Indication: DRUG DEPENDENCE
     Route: 060

REACTIONS (9)
  - Drug dependence [None]
  - Insomnia [None]
  - Hyperhidrosis [None]
  - Withdrawal syndrome [None]
  - Nausea [None]
  - Headache [None]
  - Nasopharyngitis [None]
  - Chills [None]
  - Restlessness [None]
